FAERS Safety Report 10607457 (Version 1)
Quarter: 2014Q4

REPORT INFORMATION
  Report Type: Spontaneous
  Country: DE (occurrence: DE)
  Receive Date: 20141125
  Receipt Date: 20141125
  Transmission Date: 20150529
  Serious: Yes (Hospitalization)
  Sender: FDA-Public Use
  Company Number: DE-MYLANLABS-2014M1010774

PATIENT

DRUGS (2)
  1. DICLOFENAC DURA 25 MG [Suspect]
     Active Substance: DICLOFENAC SODIUM
     Dosage: UNK
     Route: 048
     Dates: start: 20141112, end: 20141112
  2. VOLTAREN [Suspect]
     Active Substance: DICLOFENAC SODIUM
     Dosage: UNK
     Route: 048
     Dates: start: 20141112, end: 20141112

REACTIONS (6)
  - Intentional overdose [None]
  - Xanthopsia [Unknown]
  - Suicide attempt [Unknown]
  - Abdominal pain [Unknown]
  - Conjunctivitis [Unknown]
  - Overdose [Unknown]
